FAERS Safety Report 8264655-6 (Version None)
Quarter: 2012Q2

REPORT INFORMATION
  Report Type: 
  Country: None (occurrence: None)
  Receive Date: 20120406
  Receipt Date: 20120323
  Transmission Date: 20120825
  Serious: Yes (Other)
  Sender: FDA-Public Use
  Company Number: JP-JNJFOC-20120402461

PATIENT
  Age: 78 Year
  Sex: Male

DRUGS (3)
  1. ZYRTEC [Suspect]
     Route: 048
  2. UNKNOWN MEDICATION [Concomitant]
     Indication: PRODUCT USED FOR UNKNOWN INDICATION
     Route: 065
  3. ZYRTEC [Suspect]
     Indication: PRODUCT USED FOR UNKNOWN INDICATION
     Dosage: AFTER DINNER
     Route: 048
     Dates: start: 20120101

REACTIONS (2)
  - WRONG DRUG ADMINISTERED [None]
  - ILEUS PARALYTIC [None]
